FAERS Safety Report 21940258 (Version 1)
Quarter: 2023Q1

REPORT INFORMATION
  Report Type: Report from Study
  Country: US (occurrence: US)
  Receive Date: 20230201
  Receipt Date: 20230201
  Transmission Date: 20230417
  Serious: No
  Sender: FDA-Public Use
  Company Number: US-EXELIXIS-CABO-22050088

PATIENT
  Sex: Male

DRUGS (2)
  1. CABOMETYX [Suspect]
     Active Substance: CABOZANTINIB S-MALATE
     Indication: Renal cancer
     Dosage: 20 MG, QD
     Route: 048
     Dates: start: 202112
  2. CABOMETYX [Suspect]
     Active Substance: CABOZANTINIB S-MALATE
     Dosage: 20 MG, DAILY FOR 14 DAYS AND NONE FOR 14 DAYS OF EVERY 28 DAYS CYCLE
     Route: 048

REACTIONS (6)
  - Hyperkeratosis [Not Recovered/Not Resolved]
  - Joint stiffness [Unknown]
  - Pain in extremity [Not Recovered/Not Resolved]
  - Dry skin [Not Recovered/Not Resolved]
  - Taste disorder [Not Recovered/Not Resolved]
  - Inappropriate schedule of product administration [Unknown]
